FAERS Safety Report 14398954 (Version 2)
Quarter: 2018Q1

REPORT INFORMATION
  Report Type: Spontaneous
  Country: US (occurrence: US)
  Receive Date: 20180117
  Receipt Date: 20180222
  Transmission Date: 20180509
  Serious: Yes (Hospitalization)
  Sender: FDA-Public Use
  Company Number: US-JNJFOC-20171213381

PATIENT
  Age: 75 Year
  Sex: Male

DRUGS (1)
  1. XARELTO [Suspect]
     Active Substance: RIVAROXABAN
     Indication: DEEP VEIN THROMBOSIS
     Dosage: 15 MG; 20 MG
     Route: 048
     Dates: start: 20141107, end: 20150407

REACTIONS (2)
  - Gastrointestinal haemorrhage [Recovering/Resolving]
  - Hyperchromic anaemia [Recovering/Resolving]

NARRATIVE: CASE EVENT DATE: 20150407
